FAERS Safety Report 6655236-6 (Version None)
Quarter: 2010Q1

REPORT INFORMATION
  Report Type: 
  Country: None (occurrence: None)
  Receive Date: 20100324
  Receipt Date: 20100309
  Transmission Date: 20100710
  Serious: Yes (Death, Hospitalization)
  Sender: FDA-Public Use
  Company Number: VAL_00389_2010

PATIENT
  Age: 8 Month
  Sex: Male

DRUGS (14)
  1. CALCITRIOL [Suspect]
     Indication: DRUG USE FOR UNKNOWN INDICATION
     Dosage: 0.1 UG,
  2. CELLCEPT [Suspect]
     Indication: PROPHYLAXIS AGAINST TRANSPLANT REJECTION
     Dosage: (300 MG BID ORAL)
     Route: 048
     Dates: end: 20090612
  3. ARANESP [Suspect]
     Indication: RENAL FAILURE CHRONIC
     Dosage: DF, SUBCUTANEOUS
     Route: 058
     Dates: start: 20090301, end: 20090504
  4. TACROLIMUS [Concomitant]
  5. ETACRYNIC ACID [Concomitant]
  6. METOLAZONE [Concomitant]
  7. SODIUM CHLORIDE [Concomitant]
  8. CLOBAZAM [Concomitant]
  9. LEVETIRACETAM [Concomitant]
  10. DOMPERIDONE [Concomitant]
  11. OMEPRAZOLE [Concomitant]
  12. ENALAPRIL MALEATE [Concomitant]
  13. FUROSEMIDE [Concomitant]
  14. TOPIRAMATE [Concomitant]

REACTIONS (13)
  - APLASIA PURE RED CELL [None]
  - CYTOGENETIC ABNORMALITY [None]
  - DEVELOPMENTAL DELAY [None]
  - DEVICE RELATED INFECTION [None]
  - ENTEROCOCCAL INFECTION [None]
  - ILIAC ARTERY THROMBOSIS [None]
  - JUGULAR VEIN THROMBOSIS [None]
  - NEUTROPHIL COUNT DECREASED [None]
  - RESPIRATORY DISTRESS [None]
  - STAPHYLOCOCCAL INFECTION [None]
  - SUBCLAVIAN VEIN THROMBOSIS [None]
  - VENA CAVA THROMBOSIS [None]
  - WHEEZING [None]
